FAERS Safety Report 4547991-6 (Version None)
Quarter: 2004Q4

REPORT INFORMATION
  Report Type: 
  Country: None (occurrence: None)
  Receive Date: 20041220
  Receipt Date: 20040823
  Transmission Date: 20050328
  Serious: Yes (Hospitalization)
  Sender: FDA-Public Use
  Company Number: USA040876169

PATIENT
  Age: 39 Year
  Sex: Female
  Weight: 75 kg

DRUGS (4)
  1. HUMALOG [Suspect]
     Indication: DIABETES MELLITUS
     Dates: start: 19980101, end: 20031001
  2. HUMULIN N [Suspect]
     Indication: DIABETES MELLITUS
     Dates: start: 19940101
  3. HUMULIN R [Suspect]
     Indication: DIABETES MELLITUS
     Dates: start: 19940101
  4. LANTUS [Concomitant]

REACTIONS (7)
  - ANAEMIA [None]
  - BLOOD GLUCOSE DECREASED [None]
  - BRONCHITIS [None]
  - CYSTITIS [None]
  - HERPES ZOSTER [None]
  - ULCER HAEMORRHAGE [None]
  - URINARY TRACT INFECTION [None]
